FAERS Safety Report 10541390 (Version 1)
Quarter: 2014Q4

REPORT INFORMATION
  Report Type: Spontaneous
  Country: US (occurrence: None)
  Receive Date: 20141010
  Receipt Date: 20141010
  Transmission Date: 20150529
  Serious: No
  Sender: FDA-Public Use
  Company Number: 163-POMAL-14072416

PATIENT
  Age: 65 Year
  Sex: Male
  Weight: 70.3 kg

DRUGS (3)
  1. ASPIRINE (ACETYLSALICYLIC ACID)  (UNKNOWN) [Concomitant]
  2. ACYCLOVIR (ACICLOVIR) (UNKNOWN) [Concomitant]
  3. POMALYST [Suspect]
     Active Substance: POMALIDOMIDE
     Indication: PLASMA CELL MYELOMA
     Dosage: ?
     Route: 048
     Dates: start: 20140312

REACTIONS (1)
  - General physical health deterioration [None]

NARRATIVE: CASE EVENT DATE: 2014
